FAERS Safety Report 6406692-X (Version None)
Quarter: 2009Q4

REPORT INFORMATION
  Report Type: 
  Country: None (occurrence: None)
  Receive Date: 20091020
  Receipt Date: 20091008
  Transmission Date: 20100525
  Serious: Yes (Life-Threatening, Hospitalization, Other)
  Sender: FDA-Public Use
  Company Number: GB-RANBAXY-2008RR-13558

PATIENT
  Age: 39 Year
  Sex: Female
  Weight: 55 kg

DRUGS (1)
  1. PARACETAMOL [Suspect]
     Indication: DRUG USE FOR UNKNOWN INDICATION
     Dosage: 16-62 G
     Route: 048

REACTIONS (5)
  - ACUTE HEPATIC FAILURE [None]
  - HEPATECTOMY [None]
  - HEPATIC ARTERY THROMBOSIS [None]
  - OVERDOSE [None]
  - SEPSIS [None]
